FAERS Safety Report 10008276 (Version 1)
Quarter: 2014Q1

REPORT INFORMATION
  Report Type: Spontaneous
  Country: GB (occurrence: GB)
  Receive Date: 20140313
  Receipt Date: 20140313
  Transmission Date: 20141002
  Serious: Yes (Other)
  Sender: FDA-Public Use
  Company Number: GB-MYLANLABS-2014S1005053

PATIENT
  Age: 44 Year
  Sex: Female

DRUGS (3)
  1. IBUPROFEN [Suspect]
     Dosage: 30-40 TABLETS DAILY FOR SOME YEARS
     Route: 048
  2. PARACETAMOL [Concomitant]
     Route: 065
  3. CITALOPRAM [Concomitant]
     Route: 065

REACTIONS (3)
  - Nephrocalcinosis [Unknown]
  - Renal tubular acidosis [Recovering/Resolving]
  - Drug abuse [Unknown]
